FAERS Safety Report 11268834 (Version 5)
Quarter: 2020Q2

REPORT INFORMATION
  Report Type: Spontaneous
  Country: US (occurrence: US)
  Receive Date: 20150714
  Receipt Date: 20200527
  Transmission Date: 20200713
  Serious: Yes (Death, Hospitalization)
  Sender: FDA-Public Use
  Company Number: US-JNJFOC-20150705819

PATIENT
  Age: 66 Year
  Sex: Female

DRUGS (1)
  1. XARELTO [Suspect]
     Active Substance: RIVAROXABAN
     Indication: DEEP VEIN THROMBOSIS
     Route: 048
     Dates: start: 20140425, end: 20140508

REACTIONS (3)
  - Haematoma muscle [Recovering/Resolving]
  - Shock haemorrhagic [Unknown]
  - Uterine haemorrhage [Recovering/Resolving]

NARRATIVE: CASE EVENT DATE: 201405
